FAERS Safety Report 14353793 (Version 2)
Quarter: 2018Q1

REPORT INFORMATION
  Report Type: Spontaneous
  Country: JP (occurrence: JP)
  Receive Date: 20180105
  Receipt Date: 20180301
  Transmission Date: 20180509
  Serious: Yes (Other)
  Sender: FDA-Public Use
  Company Number: JP-EMD SERONO-9004637

PATIENT
  Sex: Female
  Weight: 55 kg

DRUGS (38)
  1. CEFZON                             /00559701/ [Concomitant]
     Route: 048
     Dates: start: 20161030, end: 20161101
  2. DUPHASTON [Concomitant]
     Active Substance: DYDROGESTERONE
     Indication: LUTEAL PHASE DEFICIENCY
     Route: 048
     Dates: start: 20161202, end: 20161211
  3. HUMAN CHORIONIC GONADOTROPIN [Concomitant]
     Active Substance: GONADOTROPHIN, CHORIONIC
     Route: 030
     Dates: start: 20170404
  4. DUPHASTON [Concomitant]
     Active Substance: DYDROGESTERONE
     Route: 048
     Dates: start: 20170131, end: 20170209
  5. GONAL-F RFF [Suspect]
     Active Substance: FOLLITROPIN
     Indication: OVULATION DISORDER
     Route: 058
     Dates: start: 20170215, end: 20170223
  6. HUMAN CHORIONIC GONADOTROPIN [Concomitant]
     Active Substance: GONADOTROPHIN, CHORIONIC
     Route: 030
     Dates: start: 20161204
  7. HUMAN CHORIONIC GONADOTROPIN [Concomitant]
     Active Substance: GONADOTROPHIN, CHORIONIC
     Route: 030
     Dates: start: 20170202
  8. CEFZON                             /00559701/ [Concomitant]
     Indication: INFECTION PROPHYLAXIS
     Route: 048
     Dates: start: 20160910, end: 20160911
  9. CEFZON                             /00559701/ [Concomitant]
     Route: 048
     Dates: start: 20161229, end: 20161231
  10. DUPHASTON [Concomitant]
     Active Substance: DYDROGESTERONE
     Route: 048
     Dates: start: 20170227, end: 20170308
  11. GONAL-F RFF [Suspect]
     Active Substance: FOLLITROPIN
     Route: 058
     Dates: start: 20170314, end: 20170322
  12. HUMAN CHORIONIC GONADOTROPIN [Concomitant]
     Active Substance: GONADOTROPHIN, CHORIONIC
     Route: 030
     Dates: start: 20160928
  13. HUMAN CHORIONIC GONADOTROPIN [Concomitant]
     Active Substance: GONADOTROPHIN, CHORIONIC
     Route: 030
     Dates: start: 20161002
  14. HUMAN CHORIONIC GONADOTROPIN [Concomitant]
     Active Substance: GONADOTROPHIN, CHORIONIC
     Route: 030
     Dates: start: 20161130
  15. HUMAN CHORIONIC GONADOTROPIN [Concomitant]
     Active Substance: GONADOTROPHIN, CHORIONIC
     Route: 030
     Dates: start: 20161229, end: 20161229
  16. HUMAN CHORIONIC GONADOTROPIN [Concomitant]
     Active Substance: GONADOTROPHIN, CHORIONIC
     Route: 030
     Dates: start: 20170224
  17. HUMAN CHORIONIC GONADOTROPIN [Concomitant]
     Active Substance: GONADOTROPHIN, CHORIONIC
     Route: 030
     Dates: start: 20170228
  18. CEFZON                             /00559701/ [Concomitant]
     Route: 048
     Dates: start: 20170129, end: 20170131
  19. CEFZON                             /00559701/ [Concomitant]
     Route: 048
     Dates: start: 20170330, end: 20170401
  20. DUPHASTON [Concomitant]
     Active Substance: DYDROGESTERONE
     Route: 048
     Dates: start: 20170401, end: 20170410
  21. SEXOVID [Concomitant]
     Route: 048
     Dates: start: 20160906, end: 20160913
  22. HUMAN CHORIONIC GONADOTROPIN [Concomitant]
     Active Substance: GONADOTROPHIN, CHORIONIC
     Indication: LUTEAL PHASE DEFICIENCY
     Route: 030
     Dates: start: 20160817
  23. HUMAN CHORIONIC GONADOTROPIN [Concomitant]
     Active Substance: GONADOTROPHIN, CHORIONIC
     Route: 030
     Dates: start: 20160823
  24. HUMAN CHORIONIC GONADOTROPIN [Concomitant]
     Active Substance: GONADOTROPHIN, CHORIONIC
     Route: 030
     Dates: start: 20161030
  25. HUMAN CHORIONIC GONADOTROPIN [Concomitant]
     Active Substance: GONADOTROPHIN, CHORIONIC
     Route: 030
     Dates: start: 20170104
  26. CLOMID [Concomitant]
     Active Substance: CLOMIPHENE CITRATE
     Route: 048
     Dates: start: 20170118, end: 20170122
  27. DUPHASTON [Concomitant]
     Active Substance: DYDROGESTERONE
     Route: 048
     Dates: start: 20161231, end: 20170109
  28. FOLYRMON-P [Concomitant]
     Active Substance: GONADOTROPHIN, CHORIONIC
     Indication: OVULATION DISORDER
     Route: 030
     Dates: start: 20170323, end: 20170324
  29. GONAL-F RFF [Suspect]
     Active Substance: FOLLITROPIN
     Route: 058
     Dates: start: 20170325, end: 20170329
  30. PARLODEL [Concomitant]
     Active Substance: BROMOCRIPTINE MESYLATE
     Indication: HYPERPROLACTINAEMIA
     Route: 048
     Dates: start: 20160624, end: 20170413
  31. LIPIODOL ULTRA-FLUIDE [Concomitant]
     Active Substance: ETHIODIZED OIL
     Indication: HYSTEROSALPINGOGRAM
     Route: 067
     Dates: start: 20160910
  32. SEXOVID [Concomitant]
     Indication: OVULATION DISORDER
     Route: 048
     Dates: start: 20160729, end: 20160805
  33. CEFZON                             /00559701/ [Concomitant]
     Route: 048
     Dates: start: 20170225, end: 20170227
  34. CLOMID [Concomitant]
     Active Substance: CLOMIPHENE CITRATE
     Indication: OVULATION DISORDER
     Route: 048
     Dates: start: 20161018, end: 20161022
  35. CLOMID [Concomitant]
     Active Substance: CLOMIPHENE CITRATE
     Route: 048
     Dates: start: 20161119, end: 20161123
  36. HUMAN CHORIONIC GONADOTROPIN [Concomitant]
     Active Substance: GONADOTROPHIN, CHORIONIC
     Route: 030
     Dates: start: 20170129
  37. HUMAN CHORIONIC GONADOTROPIN [Concomitant]
     Active Substance: GONADOTROPHIN, CHORIONIC
     Route: 030
     Dates: start: 20170330
  38. CLOMID [Concomitant]
     Active Substance: CLOMIPHENE CITRATE
     Route: 048
     Dates: start: 20161217, end: 20161221

REACTIONS (4)
  - Ovarian rupture [Unknown]
  - Ovarian hyperstimulation syndrome [Unknown]
  - Adnexal torsion [Unknown]
  - Biochemical pregnancy [Unknown]
